FAERS Safety Report 14073387 (Version 1)
Quarter: 2017Q4

REPORT INFORMATION
  Report Type: Spontaneous
  Country: US (occurrence: US)
  Receive Date: 20171010
  Receipt Date: 20171010
  Transmission Date: 20180321
  Serious: No
  Sender: FDA-Public Use
  Company Number: US-JNJFOC-20170813418

PATIENT

DRUGS (2)
  1. TYLENOL [Suspect]
     Active Substance: ACETAMINOPHEN
     Indication: PRODUCT USED FOR UNKNOWN INDICATION
     Route: 055
  2. TYLENOL [Suspect]
     Active Substance: ACETAMINOPHEN
     Route: 055

REACTIONS (2)
  - Incorrect route of drug administration [Unknown]
  - Intentional product misuse [Unknown]
